FAERS Safety Report 19589802 (Version 1)
Quarter: 2021Q3

REPORT INFORMATION
  Report Type: Spontaneous
  Country: NZ (occurrence: NZ)
  Receive Date: 20210721
  Receipt Date: 20210721
  Transmission Date: 20211014
  Serious: Yes (Other)
  Sender: FDA-Public Use
  Company Number: NZ-FRESENIUS KABI-FK202107521

PATIENT
  Age: 0 Month
  Sex: Male

DRUGS (2)
  1. PARACETAMOL KABI (NOT SPECIFIED) [Suspect]
     Active Substance: ACETAMINOPHEN
     Indication: PAIN
     Route: 042
  2. PARACETAMOL [Suspect]
     Active Substance: ACETAMINOPHEN
     Indication: PAIN
     Route: 048

REACTIONS (4)
  - Coagulopathy [Unknown]
  - Acute hepatic failure [Unknown]
  - Hyperbilirubinaemia [Unknown]
  - Thyroid disorder [Unknown]
